FAERS Safety Report 7866805-X (Version None)
Quarter: 2011Q4

REPORT INFORMATION
  Report Type: 
  Country: None (occurrence: None)
  Receive Date: 20111028
  Receipt Date: 20110824
  Transmission Date: 20120403
  Serious: No
  Sender: FDA-Public Use
  Company Number: US-GLAXOSMITHKLINE-A0942172A

PATIENT
  Age: 75 Year
  Sex: Female

DRUGS (8)
  1. COMBIVENT [Concomitant]
  2. LOSARTAN POTASSIUM [Concomitant]
  3. DICLOFENAC POTASSIUM [Concomitant]
  4. HYDROCHLOROTHIAZIDE [Concomitant]
  5. FLUNISOLIDE [Concomitant]
  6. LEVOTHYROXINE SODIUM [Concomitant]
  7. ADVAIR DISKUS 100/50 [Suspect]
     Indication: DYSPNOEA
     Dosage: 1PUFF TWICE PER DAY
     Route: 055
     Dates: start: 20100701, end: 20100901
  8. ALBUTEROL [Concomitant]

REACTIONS (3)
  - CANDIDIASIS [None]
  - DYSPHONIA [None]
  - THROAT IRRITATION [None]
